FAERS Safety Report 14943575 (Version 2)
Quarter: 2018Q2

REPORT INFORMATION
  Report Type: Spontaneous
  Country: ZA (occurrence: ZA)
  Receive Date: 20180528
  Receipt Date: 20180622
  Transmission Date: 20180711
  Serious: Yes (Death, Hospitalization)
  Sender: FDA-Public Use
  Company Number: PHHY2018ZA008969

PATIENT
  Age: 83 Year
  Sex: Male

DRUGS (2)
  1. VOLTAREN [Suspect]
     Active Substance: DICLOFENAC SODIUM
     Indication: PAIN
     Dosage: 100 MG, UNK
     Route: 048
     Dates: start: 201712
  2. NEXMEZOL [Suspect]
     Active Substance: ESOMEPRAZOLE MAGNESIUM
     Indication: DYSPEPSIA
     Dosage: 40 MG, UNK
     Route: 048
     Dates: start: 201805

REACTIONS (3)
  - Aneurysm [Unknown]
  - Death [Fatal]
  - Cardiac disorder [Unknown]

NARRATIVE: CASE EVENT DATE: 20180619
